FAERS Safety Report 11574589 (Version 1)
Quarter: 2015Q3

REPORT INFORMATION
  Report Type: Spontaneous
  Country: US (occurrence: US)
  Receive Date: 20150916
  Receipt Date: 20150916
  Transmission Date: 20151125
  Serious: No
  Sender: FDA-Public Use
  Company Number: US-ELI_LILLY_AND_COMPANY-US200911002321

PATIENT
  Sex: Female

DRUGS (4)
  1. THYROID THERAPY [Concomitant]
     Active Substance: UNSPECIFIED INGREDIENT
  2. FORTEO [Suspect]
     Active Substance: TERIPARATIDE
     Indication: OSTEOPOROSIS
     Dosage: UNK, UNK
     Dates: start: 200906
  3. DYAZIDE [Concomitant]
     Active Substance: HYDROCHLOROTHIAZIDE\TRIAMTERENE
  4. VITAMINS [Concomitant]
     Active Substance: VITAMINS

REACTIONS (5)
  - Blood glucose decreased [Unknown]
  - Platelet count increased [Unknown]
  - Injection site pain [Unknown]
  - Mean cell haemoglobin increased [Unknown]
  - Mean platelet volume decreased [Unknown]

NARRATIVE: CASE EVENT DATE: 2009
